FAERS Safety Report 4309067-2 (Version None)
Quarter: 2004Q1

REPORT INFORMATION
  Report Type: 
  Country: None (occurrence: None)
  Receive Date: 20040301
  Receipt Date: 20040220
  Transmission Date: 20041129
  Serious: Yes (Hospitalization)
  Sender: FDA-Public Use
  Company Number: HQWYE621715DEC03

PATIENT
  Age: 47 Year
  Sex: Female

DRUGS (11)
  1. ADVIL [Suspect]
     Route: 048
     Dates: start: 20031019, end: 20030101
  2. FURADANTIN [Suspect]
     Dates: start: 20031019, end: 20030101
  3. IBUPROFEN [Suspect]
     Route: 048
     Dates: start: 20030901, end: 20030101
  4. PIROXICAM [Suspect]
     Route: 048
     Dates: start: 20030901, end: 20030101
  5. PROPOFAN (CAFFEINE/CARBASALATE CALCIUM/CHLORPHENAMINE MALEATE/DEXTROPR [Suspect]
     Route: 048
     Dates: start: 20030901, end: 20030101
  6. PROZAC [Suspect]
     Route: 048
     Dates: start: 20030901, end: 20030101
  7. RABEPRAZOLE SODIUM [Suspect]
     Route: 048
     Dates: start: 20030901, end: 20030101
  8. NIMESULIDE (NIMESULIDE) [Concomitant]
  9. ZINAT (CEFUROXIME AXETIL) [Concomitant]
  10. ACETAMINOPHEN [Concomitant]
  11. VIRLIX (CETIRIZINE HYDROCHLORIDE) [Concomitant]

REACTIONS (10)
  - CYTOLYTIC HEPATITIS [None]
  - ESCHERICHIA URINARY TRACT INFECTION [None]
  - HEPATITIS CHOLESTATIC [None]
  - HYPOKALAEMIA [None]
  - HYPONATRAEMIA [None]
  - LYMPHOPENIA [None]
  - PRURITUS [None]
  - PYREXIA [None]
  - STEVENS-JOHNSON SYNDROME [None]
  - VIRUS SEROLOGY TEST POSITIVE [None]
